FAERS Safety Report 6790913-8 (Version None)
Quarter: 2010Q2

REPORT INFORMATION
  Report Type: 
  Country: None (occurrence: None)
  Receive Date: 20100624
  Receipt Date: 20100615
  Transmission Date: 20101027
  Serious: Yes (Hospitalization, Other)
  Sender: FDA-Public Use
  Company Number: B0662130A

PATIENT
  Sex: Male

DRUGS (1)
  1. AUGMENTIN '125' [Suspect]
     Indication: ENTEROCOCCAL INFECTION
     Dosage: 625MG THREE TIMES PER DAY
     Route: 065
     Dates: start: 20100421, end: 20100428

REACTIONS (6)
  - ADRENAL INSUFFICIENCY [None]
  - BLOOD PRESSURE DECREASED [None]
  - HYPERHIDROSIS [None]
  - LOSS OF CONSCIOUSNESS [None]
  - PALPITATIONS [None]
  - THIRST [None]
